FAERS Safety Report 5971437-4 (Version None)
Quarter: 2008Q4

REPORT INFORMATION
  Report Type: 
  Country: None (occurrence: None)
  Receive Date: 20081130
  Receipt Date: 20081125
  Transmission Date: 20090506
  Serious: Yes (Hospitalization)
  Sender: FDA-Public Use
  Company Number: FR-PFIZER INC-2008100604

PATIENT
  Sex: Male

DRUGS (4)
  1. GENOTONORM [Suspect]
     Indication: HYPOPITUITARISM
     Dosage: FREQ:7.7MG/WEEK
     Dates: start: 20050517
  2. LEVOTHYROX [Concomitant]
     Dosage: DAILY DOSE:100MCG-FREQ:DAILY
     Route: 048
     Dates: start: 20060908
  3. HYDROCORTISONE [Concomitant]
     Dosage: DAILY DOSE:10MG
     Route: 048
     Dates: start: 20070823
  4. DESMOPRESSIN ACETATE [Concomitant]
     Dosage: DAILY DOSE:50MCG-FREQ:DAILY
     Route: 045
     Dates: start: 20050722

REACTIONS (2)
  - CRANIOPHARYNGIOMA [None]
  - NEOPLASM RECURRENCE [None]
